FAERS Safety Report 4829170-8 (Version None)
Quarter: 2005Q4

REPORT INFORMATION
  Report Type: 
  Country: None (occurrence: None)
  Receive Date: 20051028
  Receipt Date: 20050914
  Transmission Date: 20060501
  Serious: No
  Sender: FDA-Public Use
  Company Number: COT_0208_2005

PATIENT
  Age: 52 Year
  Sex: Male
  Weight: 83.9154 kg

DRUGS (2)
  1. VENTAVIS [Suspect]
     Dosage: 2.5 MCG ONCE IH
     Route: 055
     Dates: start: 20050912, end: 20050912
  2. VENTAVIS [Suspect]
     Dosage: 5 MCG 6XD IH
     Route: 055
     Dates: start: 20050912

REACTIONS (4)
  - DECREASED APPETITE [None]
  - DIARRHOEA [None]
  - HEADACHE [None]
  - NAUSEA [None]
